FAERS Safety Report 7980721-4 (Version None)
Quarter: 2011Q4

REPORT INFORMATION
  Report Type: 
  Country: None (occurrence: None)
  Receive Date: 20111214
  Receipt Date: 20111202
  Transmission Date: 20120403
  Serious: Yes (Hospitalization, Other)
  Sender: FDA-Public Use
  Company Number: US-ELI_LILLY_AND_COMPANY-US201102005406

PATIENT
  Sex: Female

DRUGS (19)
  1. ESCITALOPRAM [Concomitant]
  2. MECLIZINE [Concomitant]
  3. FORTEO [Suspect]
     Indication: OSTEOPOROSIS
     Dosage: 20 UG, DAILY (1/D)
     Route: 058
     Dates: start: 20100907
  4. PRAVASTATIN [Concomitant]
  5. DILTIAZEM HCL [Concomitant]
  6. LEVOTHYROXINE SODIUM [Concomitant]
  7. HYDROCHLOROTHIAZIDE [Concomitant]
  8. LISINOPRIL [Concomitant]
  9. NITROGLYCERIN [Concomitant]
  10. METOPROLOL TARTRATE [Concomitant]
  11. CYCLOBENZAPRINE [Concomitant]
  12. CALCIUM [Concomitant]
  13. WARFARIN SODIUM [Concomitant]
  14. ALPRAZOLAM [Concomitant]
  15. HYDROCODONE [Concomitant]
  16. CENTRUM [Concomitant]
  17. FUROSEMIDE [Concomitant]
  18. HUMALOG [Concomitant]
  19. GUAIFENESIN [Concomitant]

REACTIONS (4)
  - NECK INJURY [None]
  - ARRHYTHMIA [None]
  - FALL [None]
  - CONTUSION [None]
